FAERS Safety Report 25192566 (Version 1)
Quarter: 2025Q2

REPORT INFORMATION
  Report Type: Spontaneous
  Country: CN (occurrence: CN)
  Receive Date: 20250414
  Receipt Date: 20250414
  Transmission Date: 20250717
  Serious: Yes (Hospitalization, Other)
  Sender: JIANGSU HANSOH PHARMACEUTICAL
  Company Number: CN-Jiangsu Hansoh Pharmaceutical Co., Ltd-2174787

PATIENT
  Age: 71 Year
  Sex: Male
  Weight: 60 kg

DRUGS (3)
  1. GEMCITABINE HYDROCHLORIDE [Suspect]
     Active Substance: GEMCITABINE HYDROCHLORIDE
     Indication: Bile duct cancer
     Dates: start: 20250215, end: 20250222
  2. SINTILIMAB [Suspect]
     Active Substance: SINTILIMAB
     Dates: start: 20250214, end: 20250214
  3. TIGECYCLINE [Suspect]
     Active Substance: TIGECYCLINE
     Dates: start: 20250215, end: 20250228

REACTIONS (3)
  - Immune-mediated hypothyroidism [Unknown]
  - Off label use [Unknown]
  - Neutrophil count decreased [Recovered/Resolved]

NARRATIVE: CASE EVENT DATE: 20250313
